FAERS Safety Report 4675265-1 (Version None)
Quarter: 2005Q2

REPORT INFORMATION
  Report Type: 
  Country: None (occurrence: None)
  Receive Date: 20050527
  Receipt Date: 20050519
  Transmission Date: 20051028
  Serious: Yes (Hospitalization)
  Sender: FDA-Public Use
  Company Number: US-JNJFOC-20050505202

PATIENT
  Sex: Female
  Weight: 77.11 kg

DRUGS (8)
  1. INFLIXIMAB [Suspect]
     Indication: RHEUMATOID ARTHRITIS
     Route: 042
  2. PREDNISONE TAB [Concomitant]
  3. LISINOPRIL [Concomitant]
  4. SOTALOL HCL [Concomitant]
  5. LIPITOR [Concomitant]
  6. LASIX [Concomitant]
  7. COUMADIN [Concomitant]
  8. DIGOXIN [Concomitant]

REACTIONS (6)
  - AORTIC STENOSIS [None]
  - ATRIAL FIBRILLATION [None]
  - BILE DUCT STENOSIS [None]
  - DYSPNOEA [None]
  - PALPITATIONS [None]
  - POST PROCEDURAL COMPLICATION [None]
